FAERS Safety Report 7647694-5 (Version None)
Quarter: 2011Q3

REPORT INFORMATION
  Report Type: 
  Country: None (occurrence: None)
  Receive Date: 20110801
  Receipt Date: 20110801
  Transmission Date: 20111222
  Serious: Yes (Life-Threatening, Hospitalization, Disabling)
  Sender: FDA-Public Use
  Company Number: None

PATIENT
  Age: 2 Year
  Sex: Female
  Weight: 10.886 kg

DRUGS (1)
  1. BABY ORAGEL [Suspect]
     Indication: TEETHING
     Dosage: PEA SIZED AMT TO AFFECTED AREA
     Route: 004
     Dates: start: 20110727, end: 20110727

REACTIONS (2)
  - OXYGEN SATURATION DECREASED [None]
  - METHAEMOGLOBINAEMIA [None]
